FAERS Safety Report 7596186-0 (Version None)
Quarter: 2011Q3

REPORT INFORMATION
  Report Type: 
  Country: None (occurrence: None)
  Receive Date: 20110707
  Receipt Date: 20110703
  Transmission Date: 20111222
  Serious: Yes (Other)
  Sender: FDA-Public Use
  Company Number: CN-PFIZER INC-2011148321

PATIENT
  Age: 68 Year
  Sex: Male

DRUGS (2)
  1. VFEND [Suspect]
  2. VELCADE [Concomitant]

REACTIONS (1)
  - INTESTINAL OBSTRUCTION [None]
